FAERS Safety Report 17857494 (Version 1)
Quarter: 2020Q2

REPORT INFORMATION
  Report Type: Spontaneous
  Country: FR (occurrence: FR)
  Receive Date: 20200604
  Receipt Date: 20200604
  Transmission Date: 20200714
  Serious: Yes (Other)
  Sender: FDA-Public Use
  Company Number: FR-AUROBINDO-AUR-APL-2020-024650

PATIENT
  Age: 6 Year
  Sex: Male

DRUGS (7)
  1. VORICONAZOLE. [Suspect]
     Active Substance: VORICONAZOLE
     Dosage: 8 MILLIGRAM/KILOGRAM, ONCE A DAY
     Route: 065
  2. AMPHOTERICIN B. [Suspect]
     Active Substance: AMPHOTERICIN B
     Dosage: 3 MILLIGRAM/KILOGRAM, ONCE A DAY
     Route: 065
  3. AMPHOTERICIN B. [Suspect]
     Active Substance: AMPHOTERICIN B
     Indication: ANTIFUNGAL TREATMENT
     Dosage: 5 MILLIGRAM/KILOGRAM, ONCE A DAY
     Route: 065
  4. POSACONAZOLE [Suspect]
     Active Substance: POSACONAZOLE
     Indication: ANTIFUNGAL TREATMENT
     Dosage: 70 MILLIGRAM, FOUR TIMES/DAY
     Route: 065
  5. FLUCYTOSINE. [Suspect]
     Active Substance: FLUCYTOSINE
     Indication: ANTIFUNGAL TREATMENT
     Dosage: 200 MILLIGRAM/KILOGRAM, ONCE A DAY
     Route: 065
  6. AMPHOTERICIN B. [Suspect]
     Active Substance: AMPHOTERICIN B
     Dosage: 10 MILLIGRAM/KILOGRAM, ONCE A DAY
     Route: 065
  7. VORICONAZOLE. [Suspect]
     Active Substance: VORICONAZOLE
     Indication: ANTIFUNGAL TREATMENT
     Dosage: 9 MILLIGRAM/KILOGRAM
     Route: 065

REACTIONS (6)
  - Electrolyte imbalance [Unknown]
  - Vomiting [Unknown]
  - Drug ineffective [Unknown]
  - Hyponatraemia [Unknown]
  - Nausea [Unknown]
  - Hepatic function abnormal [Unknown]
